FAERS Safety Report 5250163-3 (Version None)
Quarter: 2007Q1

REPORT INFORMATION
  Report Type: 
  Country: None (occurrence: None)
  Receive Date: 20070228
  Receipt Date: 20060508
  Transmission Date: 20070707
  Serious: Yes (Other)
  Sender: FDA-Public Use
  Company Number: US-GLAXOSMITHKLINE-A0593987A

PATIENT
  Age: 38 Year
  Sex: Male

DRUGS (4)
  1. LAMICTAL [Suspect]
     Dosage: 100MG PER DAY
     Route: 048
     Dates: start: 20060101, end: 20060216
  2. PROZAC [Concomitant]
  3. CLONAZEPAM [Concomitant]
  4. ZOCOR [Concomitant]

REACTIONS (5)
  - APHTHOUS STOMATITIS [None]
  - GINGIVAL SWELLING [None]
  - HOT FLUSH [None]
  - RASH [None]
  - STEVENS-JOHNSON SYNDROME [None]
